FAERS Safety Report 25592044 (Version 3)
Quarter: 2025Q3

REPORT INFORMATION
  Report Type: Spontaneous
  Country: US (occurrence: US)
  Receive Date: 20250722
  Receipt Date: 20250820
  Transmission Date: 20251020
  Serious: No
  Sender: PFIZER
  Company Number: US-PFIZER INC-202500145593

PATIENT
  Age: 22 Year
  Sex: Female
  Weight: 101 kg

DRUGS (1)
  1. BICILLIN L-A [Suspect]
     Active Substance: PENICILLIN G BENZATHINE
     Indication: Syphilis
     Dosage: 2.4MILLION, WEEKLY FOR 3 WEEKS
     Route: 030
     Dates: start: 202507

REACTIONS (2)
  - Maternal exposure during pregnancy [Unknown]
  - Recalled product administered [Unknown]

NARRATIVE: CASE EVENT DATE: 20250701
